FAERS Safety Report 6077293-0 (Version None)
Quarter: 2009Q1

REPORT INFORMATION
  Report Type: 
  Country: None (occurrence: None)
  Receive Date: 20090213
  Receipt Date: 20090206
  Transmission Date: 20090719
  Serious: Yes (Other)
  Sender: FDA-Public Use
  Company Number: A0768042A

PATIENT
  Sex: Male
  Weight: 84.1 kg

DRUGS (3)
  1. AVANDIA [Suspect]
     Dosage: 8MG PER DAY
     Route: 065
     Dates: start: 20040201, end: 20070601
  2. METFORMIN HCL [Concomitant]
     Dosage: 1000MG TWICE PER DAY
     Dates: start: 20020315
  3. AMARYL [Concomitant]
     Dates: start: 20040401, end: 20080301

REACTIONS (1)
  - MYOCARDIAL ISCHAEMIA [None]
